FAERS Safety Report 8238456-9 (Version None)
Quarter: 2012Q1

REPORT INFORMATION
  Report Type: 
  Country: None (occurrence: None)
  Receive Date: 20120327
  Receipt Date: 20120319
  Transmission Date: 20120608
  Serious: Yes (Hospitalization)
  Sender: FDA-Public Use
  Company Number: US-BAYER-2011-102886

PATIENT
  Age: 15 Year
  Sex: Female
  Weight: 68.027 kg

DRUGS (2)
  1. YASMIN [Suspect]
     Indication: MENORRHAGIA
     Dosage: UNK
     Dates: start: 20040101, end: 20080101
  2. DROSPIRENONE AND ETHINYL ESTRADIOL [Suspect]
     Indication: MENORRHAGIA
     Dosage: UNK
     Dates: start: 20080101, end: 20110101

REACTIONS (6)
  - ANHEDONIA [None]
  - CHOLECYSTITIS ACUTE [None]
  - PAIN [None]
  - CHOLELITHIASIS [None]
  - EMOTIONAL DISTRESS [None]
  - INJURY [None]
